FAERS Safety Report 4691240-5 (Version None)
Quarter: 2005Q2

REPORT INFORMATION
  Report Type: 
  Country: None (occurrence: None)
  Receive Date: 20050614
  Receipt Date: 20050531
  Transmission Date: 20051028
  Serious: Yes (Hospitalization, Disabling, Other)
  Sender: FDA-Public Use
  Company Number: 2005082642

PATIENT
  Age: 38 Year
  Sex: Female

DRUGS (4)
  1. LIPITOR [Suspect]
     Indication: BLOOD CHOLESTEROL INCREASED
     Dosage: 20 MG (20 MG, 1 IN 1 D), ORAL
     Route: 048
     Dates: start: 20050518
  2. ANTIVERT [Suspect]
     Indication: MENIERE'S DISEASE
     Dosage: 25 MG (25 MG, 1 IN 1 D)
     Dates: start: 19900101
  3. DIAZEPAM [Concomitant]
  4. IBUPROFEN [Concomitant]

REACTIONS (11)
  - ASTHENIA [None]
  - BLOOD CHOLESTEROL INCREASED [None]
  - CARDIAC INFECTION [None]
  - DRUG INEFFECTIVE [None]
  - FEELING ABNORMAL [None]
  - KIDNEY INFECTION [None]
  - PERICARDITIS [None]
  - PRURITUS GENERALISED [None]
  - SENSORY DISTURBANCE [None]
  - THERAPY NON-RESPONDER [None]
  - WEIGHT INCREASED [None]
